FAERS Safety Report 15357768 (Version 3)
Quarter: 2019Q1

REPORT INFORMATION
  Report Type: Spontaneous
  Country: US (occurrence: US)
  Receive Date: 20180906
  Receipt Date: 20190124
  Transmission Date: 20190417
  Serious: No
  Sender: FDA-Public Use
  Company Number: US-ACTELION-A-NJ2018-178183

PATIENT
  Age: 66 Year
  Sex: Female
  Weight: 83.9 kg

DRUGS (3)
  1. ADCIRCA [Concomitant]
     Active Substance: TADALAFIL
  2. OPSUMIT [Suspect]
     Active Substance: MACITENTAN
     Indication: PULMONARY ARTERIAL HYPERTENSION
     Dosage: 10 MG, QD
     Route: 048
  3. NIFEDIPINE. [Concomitant]
     Active Substance: NIFEDIPINE

REACTIONS (8)
  - Pain [Unknown]
  - Gingival swelling [Unknown]
  - Eye swelling [Unknown]
  - Pruritus [Unknown]
  - Oedema peripheral [Unknown]
  - Dizziness [Unknown]
  - Hypotension [Unknown]
  - Condition aggravated [Unknown]

NARRATIVE: CASE EVENT DATE: 201810
